FAERS Safety Report 5086542-7 (Version None)
Quarter: 2006Q3

REPORT INFORMATION
  Report Type: 
  Country: None (occurrence: None)
  Receive Date: 20060703
  Receipt Date: 20050930
  Transmission Date: 20061208
  Serious: No
  Sender: FDA-Public Use
  Company Number: 2005S1009794

PATIENT
  Age: 19 Year
  Sex: Female

DRUGS (9)
  1. CLOZAPINE [Suspect]
     Indication: SCHIZOPHRENIA
     Dosage: 400 MG; HS; PO, SEE IMAGE
     Route: 048
     Dates: start: 20050601, end: 20051001
  2. CLOZAPINE [Suspect]
     Indication: SCHIZOPHRENIA
     Dosage: 400 MG; HS; PO, SEE IMAGE
     Route: 048
     Dates: start: 20051002, end: 20051001
  3. CLOZAPINE [Suspect]
     Indication: SCHIZOPHRENIA
     Dosage: 400 MG; HS; PO, SEE IMAGE
     Route: 048
     Dates: start: 20051001
  4. PAROXETINE HCL [Concomitant]
  5. TOPIRAMATE [Concomitant]
  6. LORAZEPAM [Concomitant]
  7. VALPROATE SODIUM [Concomitant]
  8. LEVOTHYROXINE SODIUM [Concomitant]
  9. BENZTROPINE MESYLATE [Concomitant]

REACTIONS (1)
  - GRANULOCYTOPENIA [None]
